FAERS Safety Report 22274710 (Version 2)
Quarter: 2023Q2

REPORT INFORMATION
  Report Type: Report from Study
  Country: US (occurrence: US)
  Receive Date: 20230502
  Receipt Date: 20230511
  Transmission Date: 20230721
  Serious: Yes (Other)
  Sender: FDA-Public Use
  Company Number: US-OTSUKA-2023_011136

PATIENT
  Sex: Female
  Weight: 81.65 kg

DRUGS (5)
  1. DEXTROMETHORPHAN HYDROBROMIDE\QUINIDINE SULFATE [Suspect]
     Active Substance: DEXTROMETHORPHAN HYDROBROMIDE\QUINIDINE SULFATE
     Indication: Crying
     Dosage: 1 DF (20-10MG), BID
     Route: 065
     Dates: end: 2015
  2. DEXTROMETHORPHAN HYDROBROMIDE\QUINIDINE SULFATE [Suspect]
     Active Substance: DEXTROMETHORPHAN HYDROBROMIDE\QUINIDINE SULFATE
     Indication: Mental disorder
     Dosage: 1 DF (20-10MG), BID
     Route: 065
     Dates: start: 20230406
  3. DEXTROMETHORPHAN HYDROBROMIDE\QUINIDINE SULFATE [Suspect]
     Active Substance: DEXTROMETHORPHAN HYDROBROMIDE\QUINIDINE SULFATE
     Indication: Depressed mood
  4. TRINTELLIX [Concomitant]
     Active Substance: VORTIOXETINE HYDROBROMIDE
     Indication: Mental disorder
     Dosage: UNK
     Route: 065
     Dates: start: 202303
  5. VITAMINS NOS [Concomitant]
     Active Substance: VITAMINS
     Indication: Cerebrovascular accident
     Dosage: UNK
     Route: 065

REACTIONS (8)
  - Cerebrovascular accident [Unknown]
  - Gastrooesophageal reflux disease [Unknown]
  - Hernia [Unknown]
  - Dysphagia [Unknown]
  - Amnesia [Recovering/Resolving]
  - Inability to afford medication [Unknown]
  - Product use in unapproved indication [Unknown]
  - Therapy interrupted [Unknown]
